FAERS Safety Report 23893893 (Version 2)
Quarter: 2025Q1

REPORT INFORMATION
  Report Type: Spontaneous
  Country: US (occurrence: US)
  Receive Date: 20240524
  Receipt Date: 20250106
  Transmission Date: 20250408
  Serious: No
  Sender: AMGEN
  Company Number: US-AMGEN-USASP2024100915

PATIENT
  Age: 79 Year
  Sex: Female

DRUGS (5)
  1. REPATHA [Suspect]
     Active Substance: EVOLOCUMAB
     Indication: Blood cholesterol abnormal
     Dosage: UNK UNK, Q2WK
     Route: 065
     Dates: start: 202402, end: 202402
  2. LEVAQUIN [Concomitant]
     Active Substance: LEVOFLOXACIN
  3. LEQVIO [Concomitant]
     Active Substance: INCLISIRAN SODIUM
  4. B 12 [Concomitant]
  5. VITAMIN A [Concomitant]
     Active Substance: VITAMIN A

REACTIONS (4)
  - Illness [Unknown]
  - Salt craving [Unknown]
  - Diarrhoea [Unknown]
  - Haemorrhage [Unknown]

NARRATIVE: CASE EVENT DATE: 20240101
